FAERS Safety Report 16769953 (Version 7)
Quarter: 2019Q4

REPORT INFORMATION
  Report Type: Report from Study
  Country: CO (occurrence: CO)
  Receive Date: 20190904
  Receipt Date: 20191219
  Transmission Date: 20200122
  Serious: Yes (Hospitalization, Other)
  Sender: FDA-Public Use
  Company Number: CO-AMGEN-COLSL2019141146

PATIENT
  Age: 54 Year
  Sex: Male

DRUGS (4)
  1. VECTIBIX [Suspect]
     Active Substance: PANITUMUMAB
     Indication: COLORECTAL CANCER METASTATIC
     Dosage: 288 MILLIGRAM, Q2WK
     Route: 042
     Dates: start: 20190612, end: 20190828
  2. VECTIBIX [Suspect]
     Active Substance: PANITUMUMAB
     Dosage: 288 MILLIGRAM, Q2WK
     Route: 042
     Dates: start: 20190928, end: 20190928
  3. ARTIFICIAL TEARS [POLYVINYL ALCOHOL] [Concomitant]
     Dosage: UNK, (#1 BOTTLE 1 DROP IN EACH EYE IN THE MORNING AND AT NIGHT)
     Dates: start: 20191008
  4. VECTIBIX [Suspect]
     Active Substance: PANITUMUMAB
     Dosage: 288 MILLIGRAM, Q2WK
     Route: 042
     Dates: start: 20191106

REACTIONS (10)
  - Blood urine present [Not Recovered/Not Resolved]
  - Urinary tract infection [Recovering/Resolving]
  - Accidental exposure to product [Unknown]
  - Diarrhoea [Not Recovered/Not Resolved]
  - Device malfunction [Unknown]
  - Vomiting [Not Recovered/Not Resolved]
  - Skin reaction [Not Recovered/Not Resolved]
  - Catheter site rash [Recovering/Resolving]
  - Dizziness [Not Recovered/Not Resolved]
  - Therapeutic embolisation [Recovering/Resolving]

NARRATIVE: CASE EVENT DATE: 2019
